FAERS Safety Report 19304414 (Version 1)
Quarter: 2021Q2

REPORT INFORMATION
  Report Type: Spontaneous
  Country: US (occurrence: US)
  Receive Date: 20210525
  Receipt Date: 20210525
  Transmission Date: 20210717
  Serious: Yes (Other)
  Sender: FDA-Public Use
  Company Number: US-ASTRAZENECA-2021A428283

PATIENT
  Sex: Female
  Weight: 54 kg

DRUGS (1)
  1. FASENRA [Suspect]
     Active Substance: BENRALIZUMAB
     Indication: ASTHMA
     Dosage: 1MG/ML EVERY FOUR WEEKS
     Route: 058
     Dates: start: 20210502

REACTIONS (3)
  - Dyspnoea [Recovered/Resolved]
  - Flushing [Recovered/Resolved]
  - Pruritus [Unknown]

NARRATIVE: CASE EVENT DATE: 20210502
